FAERS Safety Report 10131421 (Version 2)
Quarter: 2014Q2

REPORT INFORMATION
  Report Type: Spontaneous
  Country: US (occurrence: US)
  Receive Date: 20140428
  Receipt Date: 20140509
  Transmission Date: 20141212
  Serious: No
  Sender: FDA-Public Use
  Company Number: US-009507513-1404USA011887

PATIENT
  Age: 79 Year
  Sex: Male

DRUGS (2)
  1. CLARITIN [Suspect]
     Indication: HYPERSENSITIVITY
     Dosage: 10 MG, QD
     Route: 048
  2. CLARITIN [Suspect]
     Dosage: 10 MG, BID
     Route: 048
     Dates: start: 20140405

REACTIONS (2)
  - Fatigue [Recovered/Resolved]
  - Accidental overdose [Unknown]
